FAERS Safety Report 8086651-4 (Version None)
Quarter: 2012Q1

REPORT INFORMATION
  Report Type: 
  Country: None (occurrence: None)
  Receive Date: 20120128
  Receipt Date: 20110517
  Transmission Date: 20120608
  Serious: No
  Sender: FDA-Public Use
  Company Number: US-ABBOTT-11P-163-0726364-00

PATIENT
  Age: 47 Year
  Sex: Female

DRUGS (7)
  1. ZOLOFT [Concomitant]
     Indication: DEPRESSION
  2. PREMARIN [Concomitant]
     Indication: HORMONE REPLACEMENT THERAPY
  3. ASACOL [Concomitant]
     Indication: CROHN'S DISEASE
  4. HUMIRA [Suspect]
     Indication: CROHN'S DISEASE
     Dates: start: 20110427
  5. PEPCID [Concomitant]
     Indication: GASTRIC DISORDER
  6. PRILOSEC [Concomitant]
     Indication: DYSPEPSIA
  7. PREDNISONE TAB [Concomitant]
     Indication: INFLAMMATION

REACTIONS (1)
  - INJECTION SITE PAIN [None]
